FAERS Safety Report 18059196 (Version 1)
Quarter: 2020Q3

REPORT INFORMATION
  Report Type: Spontaneous
  Country: US (occurrence: US)
  Receive Date: 20200723
  Receipt Date: 20200723
  Transmission Date: 20201103
  Serious: No
  Sender: FDA-Public Use
  Company Number: US-ASTRAZENECA-2020SE91345

PATIENT
  Age: 30021 Day
  Sex: Female
  Weight: 72.6 kg

DRUGS (5)
  1. VITAMINS [Concomitant]
     Active Substance: VITAMINS
  2. BYETTA [Suspect]
     Active Substance: EXENATIDE
     Indication: TYPE 2 DIABETES MELLITUS
     Route: 058
  3. LASIX [Concomitant]
     Active Substance: FUROSEMIDE
  4. NATEGLINIDE. [Concomitant]
     Active Substance: NATEGLINIDE
     Indication: DIABETES MELLITUS
     Route: 048
  5. TRAJENTA [Concomitant]
     Active Substance: LINAGLIPTIN
     Indication: DIABETES MELLITUS
     Route: 048

REACTIONS (7)
  - Weight fluctuation [Not Recovered/Not Resolved]
  - Injection site mass [Unknown]
  - Needle issue [Unknown]
  - Body height decreased [Unknown]
  - Incorrect dose administered by device [Recovered/Resolved]
  - Weight loss poor [Not Recovered/Not Resolved]
  - Injection site bruising [Unknown]

NARRATIVE: CASE EVENT DATE: 20200713
